FAERS Safety Report 10177128 (Version 2)
Quarter: 2014Q2

REPORT INFORMATION
  Report Type: Spontaneous
  Country: US (occurrence: US)
  Receive Date: 20140516
  Receipt Date: 20140516
  Transmission Date: 20141212
  Serious: Yes (Other)
  Sender: FDA-Public Use
  Company Number: US-CUBIST PHARMACEUTICALS, INC.-2014CBST000180

PATIENT
  Sex: 0

DRUGS (34)
  1. CUBICIN [Suspect]
     Indication: OSTEOMYELITIS
     Dosage: 5.5 MG/KG, Q24H
     Route: 042
     Dates: start: 20140119, end: 20140122
  2. CUBICIN [Suspect]
     Indication: OFF LABEL USE
     Dosage: 550 MG, Q24H
     Route: 042
     Dates: start: 20140119, end: 20140122
  3. CUBICIN [Suspect]
     Dosage: 5 MG/KG, Q24H
     Route: 042
     Dates: start: 20140123, end: 20140124
  4. CUBICIN [Suspect]
     Dosage: 500 MG, Q24H
     Route: 042
     Dates: start: 20140123, end: 20140124
  5. CUBICIN [Suspect]
     Dosage: 500-600 MG IN 10 ML, Q24H
     Route: 042
     Dates: start: 20140125, end: 20140204
  6. CEFAZOLIN [Concomitant]
     Indication: PRODUCT USED FOR UNKNOWN INDICATION
     Dosage: UNK, UNK, UNK
     Route: 042
     Dates: start: 20140122, end: 20140123
  7. CLINDAMYCIN [Concomitant]
     Indication: PRODUCT USED FOR UNKNOWN INDICATION
     Dosage: UNK UNK, UNK
     Route: 042
     Dates: start: 20140114, end: 20140219
  8. IRON SUCROSE [Concomitant]
     Indication: PRODUCT USED FOR UNKNOWN INDICATION
     Dosage: UNK, UNK, UNK
     Route: 065
     Dates: start: 20140122, end: 20140124
  9. MAGNESIUM SULFATE [Concomitant]
     Indication: PRODUCT USED FOR UNKNOWN INDICATION
     Dosage: UNK, UNK, UNK
     Route: 042
     Dates: start: 20140124, end: 20140124
  10. ACETAMINOPHEN [Concomitant]
     Indication: PAIN
     Dosage: 650 MG (2 TABLETS), PRN
     Route: 048
     Dates: start: 20140114, end: 20140125
  11. ACETAMINOPHEN W/HYDROCODONE [Concomitant]
     Indication: PAIN
     Dosage: 325 MG/5 MG, Q4H
     Route: 048
     Dates: start: 20140115, end: 20140125
  12. ALBUTEROL W/IPRATROPIUM [Concomitant]
     Indication: PRODUCT USED FOR UNKNOWN INDICATION
     Dosage: UNK, PRN
     Route: 065
     Dates: start: 20140122, end: 20140122
  13. ALTEPLASE [Concomitant]
     Indication: PRODUCT USED FOR UNKNOWN INDICATION
     Dosage: 2 MG I.V PUSH, ONCE
     Route: 042
     Dates: start: 20140123, end: 20140123
  14. APAP [Concomitant]
     Indication: HEADACHE
     Dosage: 2 TABLET, Q6H
     Route: 048
     Dates: start: 20140116, end: 20140125
  15. DOCUSATE [Concomitant]
     Indication: CONSTIPATION
     Dosage: UNK, BID
     Route: 048
     Dates: start: 20140121, end: 20140125
  16. ENOXAPARIN [Concomitant]
     Indication: PRODUCT USED FOR UNKNOWN INDICATION
     Dosage: 40 MG, QD
     Route: 058
     Dates: start: 20140122, end: 20140125
  17. FENTANYL [Concomitant]
     Indication: PRODUCT USED FOR UNKNOWN INDICATION
     Dosage: UNK UNK, UNK
     Route: 042
     Dates: start: 20140123, end: 20140123
  18. GABAPENTIN [Concomitant]
     Indication: PRODUCT USED FOR UNKNOWN INDICATION
     Dosage: 100 MG, TID
     Route: 048
     Dates: start: 20140114, end: 20140125
  19. GLYCOPYRROLATE                     /00196201/ [Concomitant]
     Indication: PRODUCT USED FOR UNKNOWN INDICATION
     Dosage: UNK, ONCE
     Route: 042
     Dates: start: 20140123, end: 20140123
  20. HYDROCHLOROTHIAZIDE W/TRIAMTERENE [Concomitant]
     Indication: PRODUCT USED FOR UNKNOWN INDICATION
     Dosage: 25 MG, QD
     Route: 048
     Dates: start: 20140125, end: 20140125
  21. HYDROMORPHONE [Concomitant]
     Indication: PRODUCT USED FOR UNKNOWN INDICATION
     Dosage: UNK, UNK, UNK
     Route: 065
     Dates: start: 20140110, end: 20140125
  22. INSULIN GLARGINE [Concomitant]
     Indication: PRODUCT USED FOR UNKNOWN INDICATION
     Dosage: UNK, QD
     Route: 058
     Dates: start: 20140114, end: 20140125
  23. INSULIN LISPRO [Concomitant]
     Indication: PRODUCT USED FOR UNKNOWN INDICATION
     Dosage: UNK, QD
     Route: 058
     Dates: start: 20140115, end: 20140125
  24. LABETALOL [Concomitant]
     Indication: HYPERTENSION
     Dosage: UNK, UNK, UNK
     Route: 065
     Dates: start: 20140122, end: 20140125
  25. MEPERIDINE                         /00016301/ [Concomitant]
     Indication: CHILLS
     Dosage: UNK, UNK, UNK
     Route: 065
     Dates: start: 20140122, end: 20140122
  26. METOCLOPRAMIDE [Concomitant]
     Indication: PRODUCT USED FOR UNKNOWN INDICATION
     Dosage: UNK, UNK, UNK
     Route: 065
     Dates: start: 20140115, end: 20140118
  27. METOCLOPRAMIDE [Concomitant]
     Dosage: UNK, UNK, UNK
     Route: 065
     Dates: start: 20140122, end: 20140123
  28. MIDAZOLAM [Concomitant]
     Indication: PRODUCT USED FOR UNKNOWN INDICATION
     Dosage: UNK, UNK, UNK
     Route: 065
     Dates: start: 20140118, end: 20140123
  29. MORPHINE [Concomitant]
     Indication: PRODUCT USED FOR UNKNOWN INDICATION
     Dosage: UNK, UNK, UNK
     Route: 065
     Dates: start: 20140122, end: 20140124
  30. ONDANSETRON [Concomitant]
     Indication: PRODUCT USED FOR UNKNOWN INDICATION
     Dosage: UNK, UNK, UNK
     Route: 065
     Dates: start: 20140115, end: 20140125
  31. POTASSIUM                          /00031402/ [Concomitant]
     Indication: PRODUCT USED FOR UNKNOWN INDICATION
     Dosage: UNK UNK, UNK
     Route: 065
     Dates: start: 20140123, end: 20140123
  32. PROMETHAZINE [Concomitant]
     Indication: NAUSEA
     Dosage: UNK UNK, UNK
     Route: 065
     Dates: start: 20140118, end: 20140125
  33. PROMETHAZINE [Concomitant]
     Indication: VOMITING
  34. PROPOFOL [Concomitant]
     Indication: PRODUCT USED FOR UNKNOWN INDICATION
     Dosage: UNK, ONCE
     Route: 065
     Dates: start: 20140123, end: 20140123

REACTIONS (4)
  - Blood creatine phosphokinase MB increased [Recovered/Resolved]
  - Blood creatine phosphokinase increased [Recovered/Resolved]
  - Pain [Recovered/Resolved]
  - Myalgia [Recovered/Resolved]
